FAERS Safety Report 13939057 (Version 1)
Quarter: 2017Q3

REPORT INFORMATION
  Report Type: Spontaneous
  Country: US (occurrence: US)
  Receive Date: 20170906
  Receipt Date: 20170906
  Transmission Date: 20171127
  Serious: Yes (Hospitalization)
  Sender: FDA-Public Use
  Company Number: None

PATIENT
  Age: 75 Year
  Sex: Female
  Weight: 79 kg

DRUGS (12)
  1. LEVOTHYROXINE. [Concomitant]
     Active Substance: LEVOTHYROXINE
  2. PANTOPRAZOLE [Concomitant]
     Active Substance: PANTOPRAZOLE
  3. ESCITALOPRAM [Concomitant]
     Active Substance: ESCITALOPRAM OXALATE
  4. GLIMEPIRIDE. [Concomitant]
     Active Substance: GLIMEPIRIDE
  5. NOREPINEPHRINE. [Concomitant]
     Active Substance: NOREPINEPHRINE
  6. CANAGLIFLOZIN [Suspect]
     Active Substance: CANAGLIFLOZIN
     Indication: DIABETES MELLITUS
     Route: 048
  7. METFORMIN [Concomitant]
     Active Substance: METFORMIN HYDROCHLORIDE
  8. ASPIRIN. [Concomitant]
     Active Substance: ASPIRIN
  9. PHENYLEPHRINE [Concomitant]
     Active Substance: PHENYLEPHRINE\PHENYLEPHRINE HYDROCHLORIDE
  10. VASOPRESSIN. [Concomitant]
     Active Substance: VASOPRESSIN
  11. AMIODARONE [Concomitant]
     Active Substance: AMIODARONE
  12. PROPOFOL. [Concomitant]
     Active Substance: PROPOFOL

REACTIONS (10)
  - Anion gap increased [None]
  - Diabetic ketoacidosis [None]
  - Blood glucose increased [None]
  - Urine ketone body present [None]
  - Acidosis [None]
  - Fall [None]
  - Blood bicarbonate decreased [None]
  - Post procedural complication [None]
  - Cervical vertebral fracture [None]
  - Spinal cord disorder [None]

NARRATIVE: CASE EVENT DATE: 20170903
